FAERS Safety Report 24078657 (Version 1)
Quarter: 2024Q3

REPORT INFORMATION
  Report Type: Spontaneous
  Country: GB (occurrence: GB)
  Receive Date: 20240711
  Receipt Date: 20240711
  Transmission Date: 20241017
  Serious: Yes (Death, Life-Threatening, Other)
  Sender: ACCORD
  Company Number: None

PATIENT
  Age: 74 Year
  Sex: Female

DRUGS (10)
  1. ESOMEPRAZOLE [Suspect]
     Active Substance: ESOMEPRAZOLE
     Indication: Product used for unknown indication
  2. FUROSEMIDE [Suspect]
     Active Substance: FUROSEMIDE
     Indication: Product used for unknown indication
  3. MOVELAT [Concomitant]
  4. TRAMADOL [Concomitant]
     Active Substance: TRAMADOL\TRAMADOL HYDROCHLORIDE
  5. QUININE SULFATE [Concomitant]
     Active Substance: QUININE SULFATE
  6. ALBUTEROL [Concomitant]
     Active Substance: ALBUTEROL
     Dosage: 100MIC/DOSE
  7. ACETAMINOPHEN [Concomitant]
     Active Substance: ACETAMINOPHEN
  8. ALLOPURINOL [Concomitant]
     Active Substance: ALLOPURINOL
  9. PARAFFIN [Concomitant]
     Active Substance: PARAFFIN
     Dosage: APRODERM
  10. BECLOMETASONE, FORMOTEROL, GLYCOPYRRONIUM [Concomitant]
     Dosage: 87/5 MIC, TRIMBOW

REACTIONS (1)
  - Hypomagnesaemia [Fatal]

NARRATIVE: CASE EVENT DATE: 20240425
